FAERS Safety Report 5634332-6 (Version None)
Quarter: 2008Q1

REPORT INFORMATION
  Report Type: 
  Country: None (occurrence: None)
  Receive Date: 20080131
  Receipt Date: 20071113
  Transmission Date: 20080703
  Serious: Yes (Hospitalization)
  Sender: FDA-Public Use
  Company Number: 2007-BP-24346BP

PATIENT
  Sex: Female

DRUGS (4)
  1. SPIRIVA [Suspect]
     Dosage: 18 MCG (18 MCG, 1 IN 1 D), IH
     Route: 025
  2. COMBIVENT [Concomitant]
  3. PULMICORT [Concomitant]
  4. XOPENEX NEB (LEVOSALBUTAMOL) [Concomitant]

REACTIONS (2)
  - CONSTIPATION [None]
  - PALPITATIONS [None]
